FAERS Safety Report 11430134 (Version 1)
Quarter: 2015Q3

REPORT INFORMATION
  Report Type: Spontaneous
  Country: US (occurrence: US)
  Receive Date: 20150828
  Receipt Date: 20150828
  Transmission Date: 20151125
  Serious: No
  Sender: FDA-Public Use
  Company Number: US-ROCHE-1193718

PATIENT
  Age: 57 Year
  Sex: Male

DRUGS (2)
  1. RIBAVIRIN. [Suspect]
     Active Substance: RIBAVIRIN
     Indication: HEPATITIS C
     Route: 065
     Dates: start: 20130218
  2. PEGASYS [Suspect]
     Active Substance: PEGINTERFERON ALFA-2A
     Indication: HEPATITIS C
     Route: 065
     Dates: start: 20130218

REACTIONS (8)
  - Photosensitivity reaction [Unknown]
  - Chest discomfort [Unknown]
  - Blood iron increased [Unknown]
  - Blister [Unknown]
  - Feeling jittery [Unknown]
  - Arthralgia [Unknown]
  - Fatigue [Unknown]
  - Cough [Unknown]
